FAERS Safety Report 9128913 (Version 3)
Quarter: 2020Q3

REPORT INFORMATION
  Report Type: Report from Study
  Country: GB (occurrence: GB)
  Receive Date: 20130125
  Receipt Date: 20150716
  Transmission Date: 20201104
  Serious: Yes (Hospitalization)
  Sender: FDA-Public Use
  Company Number: GB-JNJFOC-20130111263

PATIENT
  Age: 27 Year
  Sex: Male
  Weight: 79.6 kg

DRUGS (8)
  1. USTEKINUMAB [Suspect]
     Active Substance: USTEKINUMAB
     Route: 058
  2. CALCICHEW [Concomitant]
     Active Substance: CALCIUM CARBONATE
     Indication: CROHN^S DISEASE
     Route: 048
     Dates: start: 20120903
  3. AZATHIOPRINE. [Concomitant]
     Active Substance: AZATHIOPRINE
     Indication: CROHN^S DISEASE
     Route: 048
     Dates: start: 201212
  4. USTEKINUMAB [Suspect]
     Active Substance: USTEKINUMAB
     Indication: CROHN^S DISEASE
     Route: 058
     Dates: start: 20120917, end: 20120917
  5. INFLIXIMAB, RECOMBINANT [Suspect]
     Active Substance: INFLIXIMAB
     Indication: CROHN^S DISEASE
     Route: 042
     Dates: start: 20130109
  6. LORATADINE. [Concomitant]
     Active Substance: LORATADINE
     Indication: SEASONAL ALLERGY
     Route: 048
     Dates: start: 1994
  7. PARACETAMOL [Concomitant]
     Active Substance: ACETAMINOPHEN
     Route: 048
     Dates: start: 20121010
  8. NEUTROGENA NORWEIGAN FORMULA HAND CREAM [Concomitant]
     Route: 061
     Dates: start: 20121020

REACTIONS (1)
  - Viral infection [Recovered/Resolved]

NARRATIVE: CASE EVENT DATE: 20130116
